FAERS Safety Report 24835304 (Version 5)
Quarter: 2025Q4

REPORT INFORMATION
  Report Type: Spontaneous
  Country: EU (occurrence: EU)
  Receive Date: 20250113
  Receipt Date: 20251219
  Transmission Date: 20260117
  Serious: Yes (Death, Life-Threatening, Disabling, Other)
  Sender: AUROBINDO
  Company Number: EU-ABBVIE-6061218

PATIENT
  Age: 70 Year
  Sex: Male

DRUGS (37)
  1. AZACITIDINE [Suspect]
     Active Substance: AZACITIDINE
     Indication: Acute myeloid leukaemia
     Dosage: DAILY DOSE (MG/M2 BSA): 75
     Route: 065
     Dates: start: 20240520, end: 20240526
  2. AZACITIDINE [Suspect]
     Active Substance: AZACITIDINE
     Dosage: DAILY DOSE (MG/M2 BSA): 75
     Route: 065
     Dates: start: 20240617, end: 20240621
  3. AZACITIDINE [Suspect]
     Active Substance: AZACITIDINE
     Dosage: DAILY DOSE (MG/M2 BSA): 75
     Route: 065
     Dates: start: 20240624, end: 20240625
  4. AZACITIDINE [Suspect]
     Active Substance: AZACITIDINE
     Dosage: DAILY DOSE (MG/M2 BSA): 75
     Route: 065
     Dates: start: 20240715, end: 20240719
  5. AZACITIDINE [Suspect]
     Active Substance: AZACITIDINE
     Dosage: DAILY DOSE (MG/M2 BSA): 75
     Route: 065
     Dates: start: 20240722, end: 20240723
  6. AZACITIDINE [Suspect]
     Active Substance: AZACITIDINE
     Dosage: DAILY DOSE (MG/M2 BSA): 75
     Route: 065
     Dates: start: 20240812, end: 20240814
  7. AZACITIDINE [Suspect]
     Active Substance: AZACITIDINE
     Dosage: DAILY DOSE (MG/M2 BSA): 75
     Route: 065
     Dates: start: 20240816, end: 20240816
  8. AZACITIDINE [Suspect]
     Active Substance: AZACITIDINE
     Dosage: UNK
     Route: 065
     Dates: start: 20240819, end: 20240821
  9. VENETOCLAX [Suspect]
     Active Substance: VENETOCLAX
     Indication: Acute myeloid leukaemia
     Dosage: 100 MILLIGRAM
     Route: 061
     Dates: start: 20240520, end: 20240616
  10. VENETOCLAX [Suspect]
     Active Substance: VENETOCLAX
     Dosage: 100 MILLIGRAM
     Route: 061
     Dates: start: 20240617, end: 20240714
  11. VENETOCLAX [Suspect]
     Active Substance: VENETOCLAX
     Dosage: 100 MILLIGRAM
     Route: 061
     Dates: start: 20240715, end: 20240811
  12. VENETOCLAX [Suspect]
     Active Substance: VENETOCLAX
     Dosage: 100 MILLIGRAM
     Route: 061
     Dates: start: 20240812, end: 20240908
  13. LACTULOSE [Concomitant]
     Active Substance: LACTULOSE
     Indication: Constipation
     Dosage: 1 DOSAGE FORM (0.33 DAY)
     Route: 061
     Dates: start: 20240515, end: 20240527
  14. LACTULOSE [Concomitant]
     Active Substance: LACTULOSE
     Dosage: 1 DOSAGE FORM (0.33 DAY)
     Route: 061
  15. CHLORHEXIDINE GLUCONATE [Concomitant]
     Active Substance: CHLORHEXIDINE GLUCONATE
     Indication: Oral infection
     Dosage: 1 DOSAGE FORM (0.5 DAY)
     Route: 061
  16. ACYCLOVIR [Concomitant]
     Active Substance: ACYCLOVIR
     Indication: Viral infection
     Dosage: 400 MILLIGRAM (0.5 DAY)
     Route: 061
  17. ONDANSETRON [Concomitant]
     Active Substance: ONDANSETRON
     Indication: Premedication
     Dosage: 8 MILLIGRAM, AS NECESSARY
     Route: 061
     Dates: start: 20240517
  18. ONDANSETRON [Concomitant]
     Active Substance: ONDANSETRON
     Indication: Nausea
     Dosage: 4 MILLIGRAM, AS NECESSARY
     Route: 061
     Dates: start: 20240527
  19. SUCRALFATE [Concomitant]
     Active Substance: SUCRALFATE
     Indication: Gastrointestinal tract irritation
     Dosage: 1 DOSAGE FORM, ONCE A DAY
     Route: 061
     Dates: start: 20240520
  20. NYSTATIN [Concomitant]
     Active Substance: NYSTATIN
     Indication: Oral candidiasis
     Dosage: 1 DOSAGE FORM (0.25 DAY)
     Route: 061
  21. FOLIC ACID [Concomitant]
     Active Substance: FOLIC ACID
     Indication: Folate deficiency
     Dosage: 5 MILLIGRAM, ONCE A DAY
     Route: 061
     Dates: start: 20240513, end: 20240527
  22. POSACONAZOLE [Concomitant]
     Active Substance: POSACONAZOLE
     Indication: Fungal infection
     Dosage: 100 MILLIGRAM, ONCE A DAY
     Route: 061
     Dates: start: 20240527, end: 20241105
  23. METOCLOPRAMIDE [Concomitant]
     Active Substance: METOCLOPRAMIDE
     Indication: Nausea
     Dosage: 1 DOSAGE FORM, AS NECESSARY
     Route: 061
     Dates: start: 2024
  24. DAPAGLIFLOZIN PROPANEDIOL\METFORMIN HYDROCHLORIDE [Concomitant]
     Active Substance: DAPAGLIFLOZIN PROPANEDIOL\METFORMIN HYDROCHLORIDE
     Indication: Type 2 diabetes mellitus
     Dosage: 5+850 MG (0.5 DAY)
     Route: 061
  25. POLYETHYLENE GLYCOL 3350 [Concomitant]
     Active Substance: POLYETHYLENE GLYCOL 3350
     Indication: Constipation
     Dosage: 1 DOSAGE FORM, AS NECESSARY
     Route: 061
     Dates: start: 20240513
  26. ESOMEPRAZOLE [Concomitant]
     Active Substance: ESOMEPRAZOLE
     Indication: Gastrooesophageal reflux disease
     Dosage: 20 MILLIGRAM, ONCE A DAY
     Route: 061
     Dates: start: 2024
  27. LEVOCETIRIZINE [Concomitant]
     Active Substance: LEVOCETIRIZINE
     Indication: Immunosuppression
     Dosage: 5 MILLIGRAM (0.5 DAY)
     Route: 061
     Dates: start: 20240524, end: 20240527
  28. ALLOPURINOL [Concomitant]
     Active Substance: ALLOPURINOL
     Indication: Hyperuricaemia
     Dosage: 300 MILLIGRAM (0.5 DAY)
     Route: 061
  29. AMOXICILLIN\CLAVULANIC ACID [Concomitant]
     Active Substance: AMOXICILLIN\CLAVULANIC ACID
     Indication: Pyrexia
     Dosage: UNK UNK, 875 + 725 MG AS NECESSARY
     Route: 061
     Dates: start: 20240527
  30. GLYCERIN [Concomitant]
     Active Substance: GLYCERIN
     Indication: Constipation
     Dosage: 1 DOSAGE FORM, AS NECESSARY
     Dates: start: 2024
  31. SEMAGLUTIDE [Concomitant]
     Active Substance: SEMAGLUTIDE
     Indication: Type 2 diabetes mellitus
     Dosage: 0.5 OTHER QS
  32. ACETAMINOPHEN [Concomitant]
     Active Substance: ACETAMINOPHEN
     Indication: Pain
     Dosage: 1000 MILLIGRAM, AS NECESSARY
     Route: 061
     Dates: start: 2024
  33. SULFAMETHOXAZOLE\TRIMETHOPRIM [Concomitant]
     Active Substance: SULFAMETHOXAZOLE\TRIMETHOPRIM
     Indication: Bacterial infection
     Dosage: 800+160 MG
     Route: 061
  34. FUROSEMIDE [Concomitant]
     Active Substance: FUROSEMIDE
     Indication: Hypertension
     Dosage: 12.5 MILLIGRAM, AS NECESSARY
     Route: 061
     Dates: start: 20240610, end: 20240909
  35. LEVOCETIRIZINE [Concomitant]
     Active Substance: LEVOCETIRIZINE
     Indication: Immunosuppression
     Dosage: 5 MILLIGRAM, TWO TIMES A DAY
     Route: 061
     Dates: start: 20240524, end: 20240527
  36. DAPAGLIFLOZIN [Concomitant]
     Active Substance: DAPAGLIFLOZIN
     Indication: Type 2 diabetes mellitus
     Dosage: 850 MILLIGRAM
     Route: 061
  37. METFORMIN [Concomitant]
     Active Substance: METFORMIN HYDROCHLORIDE
     Indication: Type 2 diabetes mellitus
     Dosage: 5 MILLIGRAM
     Route: 061

REACTIONS (3)
  - Acute myeloid leukaemia [Fatal]
  - Diarrhoea [Recovered/Resolved]
  - Vomiting [Recovered/Resolved]

NARRATIVE: CASE EVENT DATE: 20240715
